FAERS Safety Report 7012899-3 (Version None)
Quarter: 2010Q3

REPORT INFORMATION
  Report Type: 
  Country: None (occurrence: None)
  Receive Date: 20100922
  Receipt Date: 20100909
  Transmission Date: 20110219
  Serious: Yes (Death)
  Sender: FDA-Public Use
  Company Number: 1000016295

PATIENT
  Age: 69 Year
  Sex: Female

DRUGS (5)
  1. MEMANTINE [Suspect]
     Indication: DEMENTIA ALZHEIMER'S TYPE
     Dosage: 20 MG (10 MG, 2 IN 1 D), ORAL
     Route: 048
     Dates: start: 20090804, end: 20090909
  2. INSULIN (INSULIN) (INSULIN) [Concomitant]
  3. ACETYLSALICYLIC ACID SRT [Concomitant]
  4. NICERGOLINE (NICERGOLINE) (NICERGOLINE) [Concomitant]
  5. LOVASTATIN (LOVASTATIN) (LOVASTATIN) [Concomitant]

REACTIONS (1)
  - DEATH [None]
